FAERS Safety Report 18914545 (Version 1)
Quarter: 2021Q1

REPORT INFORMATION
  Report Type: Spontaneous
  Country: CN (occurrence: CN)
  Receive Date: 20210218
  Receipt Date: 20210218
  Transmission Date: 20210420
  Serious: Yes (Hospitalization)
  Sender: FDA-Public Use
  Company Number: CN-B.BRAUN MEDICAL INC.-2106995

PATIENT
  Age: 84 Year
  Sex: Female

DRUGS (2)
  1. ALANYL GLUTAMINE INJECTION [Concomitant]
     Route: 041
     Dates: start: 20210109, end: 20210109
  2. HEPATAMINE [Suspect]
     Active Substance: ALANINE\ARGININE\CYSTEINE\GLYCINE\HISTIDINE\ISOLEUCINE\LEUCINE\LYSINE\METHIONINE\PHENYLALANINE\PROLINE\SERINE\THREONINE\TRYPTOPHAN\VALINE
     Indication: PARENTERAL NUTRITION
     Route: 041
     Dates: start: 20210109, end: 20210109

REACTIONS (1)
  - Gastrointestinal disorder [Recovering/Resolving]

NARRATIVE: CASE EVENT DATE: 20210109
